FAERS Safety Report 5054240-1 (Version None)
Quarter: 2006Q3

REPORT INFORMATION
  Report Type: 
  Country: None (occurrence: None)
  Receive Date: 20060718
  Receipt Date: 20060706
  Transmission Date: 20061208
  Serious: Yes (Death)
  Sender: FDA-Public Use
  Company Number: US-SANOFI-SYNTHELABO-A03200604336

PATIENT
  Sex: Male

DRUGS (1)
  1. PLAVIX [Suspect]
     Indication: VASCULAR OPERATION
     Dosage: UNK
     Route: 048
     Dates: start: 20051001

REACTIONS (1)
  - NEUTROPENIA [None]
